FAERS Safety Report 20623684 (Version 1)
Quarter: 2022Q1

REPORT INFORMATION
  Report Type: Report from Study
  Country: BR (occurrence: BR)
  Receive Date: 20220322
  Receipt Date: 20220322
  Transmission Date: 20220423
  Serious: Yes (Death, Other)
  Sender: FDA-Public Use
  Company Number: BR-BAYER-2022A041185

PATIENT
  Age: 68 Year
  Sex: Male

DRUGS (7)
  1. STIVARGA [Suspect]
     Active Substance: REGORAFENIB
     Indication: Hepatocellular carcinoma
     Dosage: 80 MG, QD
     Dates: start: 20191230, end: 20200105
  2. STIVARGA [Suspect]
     Active Substance: REGORAFENIB
     Indication: Hepatocellular carcinoma
     Dosage: 120 MG, QD
     Dates: start: 20200106, end: 20200112
  3. STIVARGA [Suspect]
     Active Substance: REGORAFENIB
     Indication: Hepatocellular carcinoma
     Dosage: 80 MG, QD
     Dates: end: 20220304
  4. NEXAVAR [Suspect]
     Active Substance: SORAFENIB
     Indication: Hepatocellular carcinoma
     Dosage: UNK
     Dates: start: 20180417, end: 20191226
  5. PAROXETINE [Concomitant]
     Active Substance: PAROXETINE
     Indication: Panic disorder
     Dosage: 1 DF, QD
     Dates: end: 202010
  6. PAROXETINE [Concomitant]
     Active Substance: PAROXETINE
     Indication: Panic disorder
     Dosage: 1 DF, QD
     Dates: start: 202201, end: 20220304
  7. RIVOTRIL [Concomitant]
     Active Substance: CLONAZEPAM
     Indication: Insomnia
     Dosage: 0.25 MG, PRN

REACTIONS (2)
  - Myocardial ischaemia [Fatal]
  - Myocardial infarction [None]

NARRATIVE: CASE EVENT DATE: 20220305
